FAERS Safety Report 15178354 (Version 1)
Quarter: 2018Q3

REPORT INFORMATION
  Report Type: Spontaneous
  Country: US (occurrence: US)
  Receive Date: 20180721
  Receipt Date: 20180721
  Transmission Date: 20181010
  Serious: No
  Sender: FDA-Public Use
  Company Number: US-JNJFOC-20180639893

PATIENT
  Age: 63 Year
  Sex: Female
  Weight: 88 kg

DRUGS (10)
  1. OXYCODONE [Concomitant]
     Active Substance: OXYCODONE
     Route: 065
  2. ACYCLOVIR. [Concomitant]
     Active Substance: ACYCLOVIR
     Route: 065
  3. DARZALEX [Suspect]
     Active Substance: DARATUMUMAB
     Indication: PLASMA CELL MYELOMA
     Route: 042
  4. CYCLOBENZAPRINE. [Concomitant]
     Active Substance: CYCLOBENZAPRINE
     Route: 065
  5. AMLODIPINE [Concomitant]
     Active Substance: AMLODIPINE BESYLATE
     Route: 065
  6. AMITRIPTYLINE [Concomitant]
     Active Substance: AMITRIPTYLINE
     Route: 065
  7. JANUVIA [Concomitant]
     Active Substance: SITAGLIPTIN PHOSPHATE
     Route: 065
  8. SIMVASTATIN. [Concomitant]
     Active Substance: SIMVASTATIN
     Route: 065
  9. ASPIRIN. [Concomitant]
     Active Substance: ASPIRIN
     Route: 065
  10. ACETAMINOPHEN. [Concomitant]
     Active Substance: ACETAMINOPHEN
     Route: 065

REACTIONS (2)
  - Lung infiltration [Unknown]
  - Weight increased [Unknown]

NARRATIVE: CASE EVENT DATE: 20180628
